FAERS Safety Report 10618545 (Version 1)
Quarter: 2014Q4

REPORT INFORMATION
  Report Type: Spontaneous
  Country: US (occurrence: None)
  Receive Date: 20141125
  Receipt Date: 20141125
  Transmission Date: 20150529
  Serious: Yes (Other)
  Sender: FDA-Public Use
  Company Number: US-H4001-14-01654

PATIENT
  Age: 79 Year

DRUGS (6)
  1. ETOPOSIDE. [Suspect]
     Active Substance: ETOPOSIDE
     Indication: CHRONIC LYMPHOCYTIC LEUKAEMIA
     Dosage: 50 MG/M2 (DAYS 1-4 EVERY 21 )
     Dates: start: 20110119
  2. CYCLOPHOSPHAMIDE. [Suspect]
     Active Substance: CYCLOPHOSPHAMIDE
     Indication: CHRONIC LYMPHOCYTIC LEUKAEMIA
     Dosage: (DAY 5 EVERY 21 DAYS.) , INTRAVENOUS (NOT OTHERWISE SPECIFIED)
     Dates: start: 20110119
  3. PREDISONE [Suspect]
     Active Substance: PREDNISONE
     Indication: CHRONIC LYMPHOCYTIC LEUKAEMIA
     Dosage: 60 MG/M2 (DAYS 1-4 EVERY 21
     Dates: start: 20110119
  4. VINCRISTINE [Suspect]
     Active Substance: VINCRISTINE
     Indication: CHRONIC LYMPHOCYTIC LEUKAEMIA
     Dosage: 2 MG (DAYS 1-4 EVERY 21 DAYS)?
     Dates: start: 20110119
  5. RITUXIMAB [Suspect]
     Active Substance: RITUXIMAB
     Indication: CHRONIC LYMPHOCYTIC LEUKAEMIA
     Dosage: 375 MG/M2 (EVERY 21 DAYS .) INTRAVENOUS NOT OTHERWISE SPECIFIED)
     Route: 042
     Dates: start: 20110119
  6. DOXORUBICIN [Suspect]
     Active Substance: DOXORUBICIN
     Indication: CHRONIC LYMPHOCYTIC LEUKAEMIA
     Dosage: 8 MG/M2 (DAYS 1-4 EVERY 21
     Dates: start: 20110119

REACTIONS (1)
  - Pneumonitis [None]

NARRATIVE: CASE EVENT DATE: 20110325
